FAERS Safety Report 13251832 (Version 2)
Quarter: 2017Q2

REPORT INFORMATION
  Report Type: Spontaneous
  Country: US (occurrence: US)
  Receive Date: 20170220
  Receipt Date: 20170407
  Transmission Date: 20170830
  Serious: No
  Sender: FDA-Public Use
  Company Number: US-PFIZER INC-2017072672

PATIENT
  Sex: Female
  Weight: 59 kg

DRUGS (2)
  1. LATANOPROST. [Suspect]
     Active Substance: LATANOPROST
     Indication: GLAUCOMA
     Dosage: UNK
  2. LATANOPROST. [Suspect]
     Active Substance: LATANOPROST
     Indication: INTRAOCULAR PRESSURE TEST ABNORMAL
     Dosage: UNK, 1X/DAY (2.5 ONCE A DAY OR 0.005%)
     Dates: start: 2009

REACTIONS (2)
  - Nasal congestion [Unknown]
  - Reaction to drug excipients [Recovered/Resolved]
